FAERS Safety Report 19987551 (Version 1)
Quarter: 2021Q4

REPORT INFORMATION
  Report Type: Spontaneous
  Country: FR (occurrence: FR)
  Receive Date: 20211022
  Receipt Date: 20211022
  Transmission Date: 20220304
  Serious: Yes (Other)
  Sender: FDA-Public Use
  Company Number: FR-ORGANON-O2110FRA001633

PATIENT
  Age: 56 Year
  Sex: Female

DRUGS (1)
  1. LIPTRUZET [Suspect]
     Active Substance: ATORVASTATIN CALCIUM\EZETIMIBE
     Indication: Type IIa hyperlipidaemia
     Dosage: 10MG/10MG, QAM
     Route: 048
     Dates: start: 20211004, end: 20211008

REACTIONS (9)
  - Paralysis [Recovering/Resolving]
  - Joint noise [Recovering/Resolving]
  - Arthralgia [Recovering/Resolving]
  - Vision blurred [Recovering/Resolving]
  - Dizziness [Recovering/Resolving]
  - Insomnia [Recovering/Resolving]
  - Depression [Recovering/Resolving]
  - Fatigue [Not Recovered/Not Resolved]
  - Vomiting [Recovering/Resolving]

NARRATIVE: CASE EVENT DATE: 20211001
